FAERS Safety Report 15109468 (Version 1)
Quarter: 2018Q2

REPORT INFORMATION
  Report Type: Spontaneous
  Country: US (occurrence: US)
  Receive Date: 20180611
  Receipt Date: 20180611
  Transmission Date: 20180711
  Serious: No
  Sender: FDA-Public Use
  Company Number: None

PATIENT
  Age: 77 Year
  Sex: Male

DRUGS (14)
  1. LUPRON DEPOT [Concomitant]
     Active Substance: LEUPROLIDE ACETATE
  2. VITAMIN D3 [Concomitant]
     Active Substance: CHOLECALCIFEROL
  3. VITAMIN C [Concomitant]
     Active Substance: ASCORBIC ACID
  4. WAFARIN SODIUM [Concomitant]
  5. SPIRONOLACTONE. [Concomitant]
     Active Substance: SPIRONOLACTONE
  6. ZYTIGA [Suspect]
     Active Substance: ABIRATERONE ACETATE
     Indication: PROSTATE CANCER
     Route: 048
     Dates: start: 20180227
  7. PREDNISONE. [Concomitant]
     Active Substance: PREDNISONE
  8. DIGOXIN. [Concomitant]
     Active Substance: DIGOXIN
  9. VITAMIN B12 [Concomitant]
     Active Substance: CYANOCOBALAMIN
  10. CARVEDILOL. [Concomitant]
     Active Substance: CARVEDILOL
  11. PROLIA [Concomitant]
     Active Substance: DENOSUMAB
  12. FISH OIL [Concomitant]
     Active Substance: FISH OIL
  13. FUROSEMIDE. [Concomitant]
     Active Substance: FUROSEMIDE
  14. LISINOPRIL. [Concomitant]
     Active Substance: LISINOPRIL

REACTIONS (1)
  - Drug ineffective [None]
